FAERS Safety Report 11611725 (Version 1)
Quarter: 2015Q4

REPORT INFORMATION
  Report Type: Spontaneous
  Country: JP (occurrence: JP)
  Receive Date: 20151008
  Receipt Date: 20151008
  Transmission Date: 20160304
  Serious: Yes (Hospitalization)
  Sender: FDA-Public Use
  Company Number: JP-UNICHEM LABORATORIES LIMITED-UCM201510-000843

PATIENT
  Age: 78 Year
  Sex: Female

DRUGS (3)
  1. FLUVOXAMINE [Suspect]
     Active Substance: FLUVOXAMINE
     Indication: DEMENTIA ALZHEIMER^S TYPE
  2. MEMANTINE. [Concomitant]
     Active Substance: MEMANTINE
     Indication: DEMENTIA ALZHEIMER^S TYPE
  3. DIVALPROEX SODIUM. [Suspect]
     Active Substance: DIVALPROEX SODIUM
     Indication: DEMENTIA ALZHEIMER^S TYPE

REACTIONS (3)
  - Akinesia [Recovered/Resolved]
  - Decubitus ulcer [Recovered/Resolved]
  - Off label use [Unknown]
